FAERS Safety Report 8759558 (Version 3)
Quarter: 2012Q4

REPORT INFORMATION
  Report Type: 
  Country: US (occurrence: US)
  Receive Date: 20120829
  Receipt Date: 20121003
  Transmission Date: 20130627
  Serious: Yes (Hospitalization, Disabling, Other)
  Sender: FDA-Public Use
  Company Number: US-009507513-1203USA03419

PATIENT

DRUGS (8)
  1. FOSAMAX [Suspect]
     Indication: OSTEOPENIA
     Dosage: 70 mg, QW
     Route: 048
     Dates: start: 1997, end: 2007
  2. FOSAMAX [Suspect]
     Indication: OSTEOPOROSIS
     Dosage: 70 mg, QW
     Route: 048
     Dates: start: 20051113
  3. FOSAMAX [Suspect]
     Route: 048
     Dates: start: 1997, end: 2007
  4. FOSAMAX [Suspect]
     Indication: OSTEOPENIA
  5. FOSAMAX [Suspect]
     Indication: OSTEOPOROSIS
  6. BONIVA [Suspect]
     Dosage: 150 mg, QM
     Route: 048
     Dates: start: 2007, end: 2010
  7. BONIVA [Suspect]
     Indication: PROPHYLAXIS
  8. SYNTHROID [Concomitant]
     Indication: HYPOTHYROIDISM

REACTIONS (37)
  - Femur fracture [Unknown]
  - Anaemia [Unknown]
  - Bone disorder [Unknown]
  - Uterine prolapse [Unknown]
  - Low turnover osteopathy [Unknown]
  - Tooth disorder [Unknown]
  - Hypercholesterolaemia [Unknown]
  - Rectocele [Unknown]
  - Cystocele [Unknown]
  - Essential hypertension [Unknown]
  - Stress fracture [Unknown]
  - Urinary tract obstruction [Unknown]
  - Arthritis [Unknown]
  - Excoriation [Unknown]
  - Limb asymmetry [Unknown]
  - Varicose vein [Unknown]
  - Urinary tract infection [Unknown]
  - Bronchitis [Unknown]
  - Hydronephrosis [Unknown]
  - Adverse event [Unknown]
  - Autoimmune thyroiditis [Unknown]
  - Breast cyst [Unknown]
  - Tachycardia [Unknown]
  - Cerumen impaction [Unknown]
  - Foot fracture [Recovered/Resolved]
  - Sleep apnoea syndrome [Unknown]
  - Arthropod sting [Unknown]
  - Allergy to arthropod sting [Unknown]
  - Bladder prolapse [Unknown]
  - Diverticulum [Unknown]
  - Ureteric dilatation [Unknown]
  - Cholelithiasis [Unknown]
  - Vaginal discharge [Unknown]
  - Dental implantation [Unknown]
  - Pain in extremity [Unknown]
  - Dyspepsia [Unknown]
  - Back pain [Unknown]
